FAERS Safety Report 7485457-4 (Version None)
Quarter: 2011Q2

REPORT INFORMATION
  Report Type: 
  Country: None (occurrence: None)
  Receive Date: 20110517
  Receipt Date: 20110502
  Transmission Date: 20111010
  Serious: No
  Sender: FDA-Public Use
  Company Number: US-B.I. PHARMACEUTICALS,INC./RIDGEFIELD-2011-BP-12234BP

PATIENT
  Age: 74 Year
  Sex: Female

DRUGS (10)
  1. CO Q10 [Concomitant]
     Indication: ROUTINE HEALTH MAINTENANCE
  2. AMBIEN [Concomitant]
     Indication: INSOMNIA
  3. FERROUS SULFATE TAB [Concomitant]
     Indication: ANAEMIA
  4. VITAMIN D [Concomitant]
     Indication: ROUTINE HEALTH MAINTENANCE
  5. METOPROLOL SUCCINATE [Concomitant]
     Indication: HYPERTENSION
  6. ZYRTEC [Concomitant]
     Indication: HYPERSENSITIVITY
  7. PRAVASTATIN [Concomitant]
     Indication: BLOOD CHOLESTEROL INCREASED
  8. PRILOSEC [Concomitant]
     Indication: HIATUS HERNIA
  9. PRADAXA [Suspect]
     Indication: ATRIAL FIBRILLATION
     Dosage: 300 MG
     Route: 048
     Dates: start: 20110316, end: 20110321
  10. PRADAXA [Suspect]
     Dosage: 300 MG
     Route: 048
     Dates: start: 20110419

REACTIONS (3)
  - HAEMATOCRIT DECREASED [None]
  - HAEMOGLOBIN DECREASED [None]
  - FATIGUE [None]
